FAERS Safety Report 8972761 (Version 2)
Quarter: 2013Q2

REPORT INFORMATION
  Report Type: Spontaneous
  Country: US (occurrence: US)
  Receive Date: 20121219
  Receipt Date: 20130423
  Transmission Date: 20140414
  Serious: Yes (Hospitalization, Other)
  Sender: FDA-Public Use
  Company Number: US-BAYER-2012-131282

PATIENT
  Age: 30 Year
  Sex: Female
  Weight: 95.24 kg

DRUGS (25)
  1. OCELLA [Suspect]
     Indication: CONTRACEPTION
     Dosage: UNK
     Dates: start: 2008, end: 2012
  2. OCELLA [Suspect]
     Indication: PREMENSTRUAL DYSPHORIC DISORDER
  3. OCELLA [Suspect]
     Indication: PREMENSTRUAL SYNDROME
  4. OCELLA [Suspect]
     Indication: MENSTRUAL DISORDER
  5. OCELLA [Suspect]
     Indication: DYSMENORRHOEA
  6. YASMIN [Suspect]
     Indication: CONTRACEPTION
     Dosage: UNK
     Dates: start: 2003, end: 2008
  7. YASMIN [Suspect]
     Indication: PREMENSTRUAL DYSPHORIC DISORDER
  8. YASMIN [Suspect]
     Indication: PREMENSTRUAL SYNDROME
  9. YASMIN [Suspect]
     Indication: MENSTRUAL DISORDER
  10. YASMIN [Suspect]
     Indication: DYSMENORRHOEA
  11. ZOLOFT [Concomitant]
     Indication: DEPRESSION
     Dosage: 50 MG, DAILY
     Dates: start: 2002
  12. ZOLOFT [Concomitant]
     Indication: ANXIETY
  13. XANAX [Concomitant]
     Indication: ANXIETY
     Dosage: 0.25 MG, DAILY PRN
     Dates: start: 2002
  14. ULTRAM [Concomitant]
     Indication: NECK PAIN
     Dosage: 50 MG, Q4HR AS NEEDED
     Dates: start: 2005
  15. FLEXERIL [Concomitant]
     Indication: MUSCLE RELAXANT THERAPY
     Dosage: 10 MG, HS AS NEEDED
     Dates: start: 2009
  16. FLEXERIL [Concomitant]
     Indication: BACK PAIN
  17. Z-PAK [Concomitant]
  18. EXCEDRIN [ACETYLSALICYLIC ACID,CAFFEINE,PARACETAMOL] [Concomitant]
  19. IBUPROFEN [Concomitant]
  20. PHENERGAN [Concomitant]
  21. SERTRALINE [Concomitant]
  22. TRAMADOL [Concomitant]
  23. VICODIN [Concomitant]
  24. NICOTINE [Concomitant]
  25. DALTEPARIN [Concomitant]

REACTIONS (4)
  - Deep vein thrombosis [None]
  - Pulmonary embolism [None]
  - Deep vein thrombosis [None]
  - Thrombophlebitis superficial [None]
